FAERS Safety Report 24694118 (Version 1)
Quarter: 2024Q4

REPORT INFORMATION
  Report Type: Spontaneous
  Country: CA (occurrence: CA)
  Receive Date: 20241204
  Receipt Date: 20241204
  Transmission Date: 20250114
  Serious: Yes (Death, Life-Threatening, Hospitalization, Disabling, Congenital Anomaly, Other)
  Sender: Haleon PLC
  Company Number: CA-002147023-NVSC2024CA181503

PATIENT
  Age: 43 Year
  Sex: Female
  Weight: 68 kg

DRUGS (105)
  1. DICLOFENAC POTASSIUM [Suspect]
     Active Substance: DICLOFENAC POTASSIUM
     Indication: Product used for unknown indication
  2. DICLOFENAC POTASSIUM [Suspect]
     Active Substance: DICLOFENAC POTASSIUM
  3. FOLIC ACID [Suspect]
     Active Substance: FOLIC ACID
     Indication: Rheumatoid arthritis
     Route: 048
  4. LEFLUNOMIDE [Suspect]
     Active Substance: LEFLUNOMIDE
     Indication: Rheumatoid arthritis
     Dosage: 20 MG, QD (1 EVERY 1 DAYS)
     Route: 065
  5. LEFLUNOMIDE [Suspect]
     Active Substance: LEFLUNOMIDE
     Dosage: 10 MG, QD (1 EVERY 1 DAYS)
     Route: 065
  6. LEFLUNOMIDE [Suspect]
     Active Substance: LEFLUNOMIDE
     Route: 065
  7. LEFLUNOMIDE [Suspect]
     Active Substance: LEFLUNOMIDE
     Route: 048
  8. LEFLUNOMIDE [Suspect]
     Active Substance: LEFLUNOMIDE
     Route: 065
  9. LEFLUNOMIDE [Suspect]
     Active Substance: LEFLUNOMIDE
     Route: 048
  10. RITUXIMAB [Suspect]
     Active Substance: RITUXIMAB
     Indication: Rheumatoid arthritis
     Route: 043
  11. RITUXIMAB [Suspect]
     Active Substance: RITUXIMAB
     Route: 065
  12. RITUXIMAB [Suspect]
     Active Substance: RITUXIMAB
     Route: 041
  13. RITUXIMAB [Suspect]
     Active Substance: RITUXIMAB
     Route: 042
  14. RITUXIMAB [Suspect]
     Active Substance: RITUXIMAB
     Route: 042
  15. RITUXIMAB [Suspect]
     Active Substance: RITUXIMAB
     Route: 043
  16. RITUXIMAB [Suspect]
     Active Substance: RITUXIMAB
     Route: 042
  17. RITUXIMAB [Suspect]
     Active Substance: RITUXIMAB
     Route: 043
  18. RITUXIMAB [Suspect]
     Active Substance: RITUXIMAB
     Route: 042
  19. RITUXIMAB [Suspect]
     Active Substance: RITUXIMAB
     Route: 058
  20. COSENTYX [Concomitant]
     Active Substance: SECUKINUMAB
     Indication: Product used for unknown indication
     Dosage: PRE FILLED SYRINGE (DEVICE)
  21. COSENTYX [Suspect]
     Active Substance: SECUKINUMAB
     Indication: Rheumatoid arthritis
     Route: 065
  22. COSENTYX [Suspect]
     Active Substance: SECUKINUMAB
     Indication: Psoriatic arthropathy
     Route: 065
  23. OXYCODONE HYDROCHLORIDE [Suspect]
     Active Substance: OXYCODONE HYDROCHLORIDE
     Indication: Product used for unknown indication
     Route: 065
  24. PANTOPRAZOLE SODIUM [Suspect]
     Active Substance: PANTOPRAZOLE SODIUM
     Indication: Dyspepsia
     Route: 005
  25. METHOTREXATE [Suspect]
     Active Substance: METHOTREXATE
     Indication: Rheumatoid arthritis
     Route: 048
  26. METHOTREXATE [Suspect]
     Active Substance: METHOTREXATE
     Dosage: 20 MG, QD
     Route: 048
  27. METHOTREXATE [Suspect]
     Active Substance: METHOTREXATE
     Dosage: 20 MG, QW (1 EVERY 1 WEEKS)
     Route: 013
  28. METHOTREXATE [Suspect]
     Active Substance: METHOTREXATE
     Dosage: 25 MG, QW (EVERY 1 WEEKS)
     Route: 013
  29. METHOTREXATE [Suspect]
     Active Substance: METHOTREXATE
     Route: 065
  30. METHOTREXATE [Suspect]
     Active Substance: METHOTREXATE
     Dosage: 15 MG, QW (1 EVERY 1 WEEKS)
     Route: 048
  31. METHOTREXATE [Suspect]
     Active Substance: METHOTREXATE
     Route: 051
  32. METHOTREXATE [Suspect]
     Active Substance: METHOTREXATE
     Dosage: 1 G, Q12H
     Route: 048
  33. METHOTREXATE [Suspect]
     Active Substance: METHOTREXATE
     Dosage: 25 MG, QW (1 EVERY 1 WEEKS)
     Route: 048
  34. METHOTREXATE [Suspect]
     Active Substance: METHOTREXATE
     Dosage: 20 MG, QW (1 EVERY 1 WEEKS)
     Route: 065
  35. METHOTREXATE [Suspect]
     Active Substance: METHOTREXATE
     Dosage: 20 MG, Q24H (1 EVERY 24 HOURS)
     Route: 048
  36. METHOTREXATE [Suspect]
     Active Substance: METHOTREXATE
     Dosage: 20 MG, QW (1 EVERY 1 WEEKS)
     Route: 048
  37. METHOTREXATE [Suspect]
     Active Substance: METHOTREXATE
     Dosage: 15 MG, Q12H (1 EVERY 12 HOURS)
     Route: 048
  38. METHOTREXATE [Suspect]
     Active Substance: METHOTREXATE
     Dosage: 25 MG, QW (1 EVERY 1 WEEKS)
     Route: 013
  39. METHOTREXATE [Suspect]
     Active Substance: METHOTREXATE
     Route: 048
  40. METHOTREXATE [Suspect]
     Active Substance: METHOTREXATE
     Dosage: 20 MG, QW (1 EVERY 1 WEEKS)
     Route: 048
  41. METHOTREXATE [Suspect]
     Active Substance: METHOTREXATE
     Route: 048
  42. METHOTREXATE [Suspect]
     Active Substance: METHOTREXATE
     Route: 048
  43. METHOTREXATE [Suspect]
     Active Substance: METHOTREXATE
     Route: 048
  44. METHOTREXATE [Suspect]
     Active Substance: METHOTREXATE
     Dosage: 25 MG (1 EVERY .5 DAYS)
     Route: 048
  45. METHOTREXATE [Suspect]
     Active Substance: METHOTREXATE
     Route: 065
  46. METHOTREXATE [Suspect]
     Active Substance: METHOTREXATE
     Dosage: 15 MG, Q12H (1 EVERY 12 HOURS)
     Route: 048
  47. METHOTREXATE [Suspect]
     Active Substance: METHOTREXATE
     Dosage: 1 G (1 EVERY .5 DAY)
     Route: 048
  48. METHOTREXATE [Suspect]
     Active Substance: METHOTREXATE
     Dosage: 25 MG, Q24H (1 EVERY 24 HOURS)
     Route: 014
  49. METHOTREXATE [Suspect]
     Active Substance: METHOTREXATE
     Dosage: 25 MG, QW (1 EVERY 1 WEEKS)
     Route: 058
  50. METHOTREXATE [Suspect]
     Active Substance: METHOTREXATE
     Route: 013
  51. METHOTREXATE [Suspect]
     Active Substance: METHOTREXATE
     Route: 065
  52. METHOTREXATE [Suspect]
     Active Substance: METHOTREXATE
     Dosage: 1 G, Q24H (1 EVERY 24 HOURS)
     Route: 048
  53. METHOTREXATE [Suspect]
     Active Substance: METHOTREXATE
     Dosage: (1 EVERY 1 WEEKS)
     Route: 048
  54. METHOTREXATE [Suspect]
     Active Substance: METHOTREXATE
     Route: 048
  55. METHOTREXATE [Suspect]
     Active Substance: METHOTREXATE
     Route: 048
  56. METHOTREXATE [Suspect]
     Active Substance: METHOTREXATE
     Dosage: 1 DOSAGE FORM, QD (1 EVERY 1 DAYS)
     Route: 048
  57. METHOTREXATE [Suspect]
     Active Substance: METHOTREXATE
     Dosage: 1 G, Q12H (1 EVERY 12 HOURS)
     Route: 048
  58. METHOTREXATE [Suspect]
     Active Substance: METHOTREXATE
     Route: 058
  59. MYCOPHENOLATE MOFETIL [Suspect]
     Active Substance: MYCOPHENOLATE MOFETIL
     Indication: Product used for unknown indication
     Route: 065
  60. MYCOPHENOLATE MOFETIL [Suspect]
     Active Substance: MYCOPHENOLATE MOFETIL
     Route: 065
  61. QUETIAPINE FUMARATE [Suspect]
     Active Substance: QUETIAPINE FUMARATE
     Indication: Product used for unknown indication
     Route: 065
  62. LEFLUNOMIDE [Suspect]
     Active Substance: LEFLUNOMIDE
     Indication: Rheumatoid arthritis
     Route: 048
  63. ADALIMUMAB [Suspect]
     Active Substance: ADALIMUMAB
     Indication: Rheumatoid arthritis
     Route: 065
  64. ADALIMUMAB [Suspect]
     Active Substance: ADALIMUMAB
     Route: 058
  65. ADALIMUMAB [Suspect]
     Active Substance: ADALIMUMAB
     Route: 065
  66. DICLOFENAC POTASSIUM [Suspect]
     Active Substance: DICLOFENAC POTASSIUM
     Indication: Product used for unknown indication
     Route: 065
  67. QUETIAPINE FUMARATE [Suspect]
     Active Substance: QUETIAPINE FUMARATE
     Indication: Product used for unknown indication
     Route: 065
  68. QUETIAPINE FUMARATE [Suspect]
     Active Substance: QUETIAPINE FUMARATE
     Route: 065
  69. COSENTYX [Suspect]
     Active Substance: SECUKINUMAB
     Indication: Rheumatoid arthritis
  70. COSENTYX [Suspect]
     Active Substance: SECUKINUMAB
     Indication: Psoriatic arthropathy
  71. ALENDRONATE SODIUM [Suspect]
     Active Substance: ALENDRONATE SODIUM
     Indication: Rheumatoid arthritis
     Route: 048
  72. HYDROCORTISONE [Suspect]
     Active Substance: HYDROCORTISONE
     Indication: Rheumatoid arthritis
     Route: 065
  73. OXYCODONE HYDROCHLORIDE [Suspect]
     Active Substance: OXYCODONE HYDROCHLORIDE
     Indication: Product used for unknown indication
     Route: 065
  74. ADALIMUMAB [Suspect]
     Active Substance: ADALIMUMAB
     Indication: Rheumatoid arthritis
     Route: 058
  75. ERELZI [Suspect]
     Active Substance: ETANERCEPT-SZZS
     Indication: Rheumatoid arthritis
     Route: 058
  76. ERELZI [Suspect]
     Active Substance: ETANERCEPT-SZZS
     Route: 058
  77. FOLIC ACID [Suspect]
     Active Substance: FOLIC ACID
     Indication: Rheumatoid arthritis
     Dosage: 5 MG (1 EVERY .25 DAY)
     Route: 065
  78. FOLIC ACID [Suspect]
     Active Substance: FOLIC ACID
     Route: 048
  79. FOLIC ACID [Suspect]
     Active Substance: FOLIC ACID
     Route: 065
  80. FOLIC ACID [Suspect]
     Active Substance: FOLIC ACID
     Route: 065
  81. FOLIC ACID [Suspect]
     Active Substance: FOLIC ACID
     Route: 065
  82. FOLIC ACID [Suspect]
     Active Substance: FOLIC ACID
     Route: 065
  83. FOLIC ACID [Suspect]
     Active Substance: FOLIC ACID
     Route: 065
  84. FOLIC ACID [Suspect]
     Active Substance: FOLIC ACID
     Route: 048
  85. FOLIC ACID [Suspect]
     Active Substance: FOLIC ACID
     Route: 065
  86. FOLIC ACID [Suspect]
     Active Substance: FOLIC ACID
     Route: 065
  87. FOLIC ACID [Suspect]
     Active Substance: FOLIC ACID
     Route: 065
  88. FOLIC ACID [Suspect]
     Active Substance: FOLIC ACID
     Route: 065
  89. FOLIC ACID [Suspect]
     Active Substance: FOLIC ACID
     Route: 065
  90. FOLIC ACID [Suspect]
     Active Substance: FOLIC ACID
     Route: 048
  91. FOLIC ACID [Suspect]
     Active Substance: FOLIC ACID
     Route: 058
  92. FOLIC ACID [Suspect]
     Active Substance: FOLIC ACID
     Route: 065
  93. FOLIC ACID [Suspect]
     Active Substance: FOLIC ACID
     Route: 065
  94. PREGABALIN [Suspect]
     Active Substance: PREGABALIN
     Indication: Product used for unknown indication
     Route: 065
  95. CANDESARTAN [Suspect]
     Active Substance: CANDESARTAN
     Indication: Migraine
     Route: 048
  96. ERELZI [Suspect]
     Active Substance: ETANERCEPT-SZZS
     Indication: Rheumatoid arthritis
  97. METHOTREXATE [Suspect]
     Active Substance: METHOTREXATE
     Indication: Product used for unknown indication
     Route: 058
  98. VOLTAREN [Suspect]
     Active Substance: DICLOFENAC SODIUM
     Indication: Product used for unknown indication
     Dosage: UNK (EMULGEL)
  99. ALENDRONATE SODIUM [Suspect]
     Active Substance: ALENDRONATE SODIUM
     Indication: Rheumatoid arthritis
     Route: 065
  100. ALENDRONATE SODIUM [Suspect]
     Active Substance: ALENDRONATE SODIUM
     Route: 048
  101. AIMOVIG [Suspect]
     Active Substance: ERENUMAB\ERENUMAB-AOOE
     Indication: Migraine
     Route: 065
  102. DICLOFENAC SODIUM [Suspect]
     Active Substance: DICLOFENAC SODIUM
     Indication: Product used for unknown indication
     Route: 065
  103. DICLOFENAC SODIUM [Suspect]
     Active Substance: DICLOFENAC SODIUM
     Route: 065
  104. DICLOFENAC SODIUM [Suspect]
     Active Substance: DICLOFENAC SODIUM
     Route: 047
  105. DICLOFENAC SODIUM [Suspect]
     Active Substance: DICLOFENAC SODIUM
     Route: 058

REACTIONS (25)
  - Autoimmune disorder [Fatal]
  - Peripheral swelling [Fatal]
  - Urticaria [Fatal]
  - Psoriatic arthropathy [Fatal]
  - Contusion [Fatal]
  - Weight increased [Fatal]
  - Chest pain [Fatal]
  - Dizziness [Fatal]
  - Stomatitis [Fatal]
  - Confusional state [Fatal]
  - Rheumatoid arthritis [Fatal]
  - C-reactive protein increased [Fatal]
  - Nasopharyngitis [Fatal]
  - Bursitis [Fatal]
  - Asthma [Fatal]
  - Asthenia [Fatal]
  - Osteoarthritis [Fatal]
  - Blood cholesterol increased [Fatal]
  - Obesity [Fatal]
  - Deep vein thrombosis postoperative [Fatal]
  - Paraesthesia [Fatal]
  - Night sweats [Fatal]
  - Hypertension [Fatal]
  - Peripheral venous disease [Fatal]
  - Liver injury [Fatal]
